FAERS Safety Report 16188716 (Version 2)
Quarter: 2019Q3

REPORT INFORMATION
  Report Type: Spontaneous
  Country: JP (occurrence: JP)
  Receive Date: 20190412
  Receipt Date: 20190906
  Transmission Date: 20191004
  Serious: Yes (Other)
  Sender: FDA-Public Use
  Company Number: JP-REGENERON PHARMACEUTICALS, INC.-2019-25930

PATIENT

DRUGS (5)
  1. EYLEA [Suspect]
     Active Substance: AFLIBERCEPT
     Dosage: 0.05 ML, ONCE (LEFT EYE)
     Route: 031
     Dates: start: 20151204, end: 20151204
  2. LUCENTIS [Concomitant]
     Active Substance: RANIBIZUMAB
     Dosage: DAILY DOSE 0.05 ML (RIGHT EYE)
     Route: 031
     Dates: start: 20120323
  3. LUCENTIS [Concomitant]
     Active Substance: RANIBIZUMAB
     Indication: NEOVASCULAR AGE-RELATED MACULAR DEGENERATION
     Dosage: DAILY DOSE 0.05 ML (LEFT EYE; FROM 10-JUL-2015 TO 1-APR-2016, IVA WAS DONE)
     Route: 031
     Dates: start: 20091006
  4. EYLEA [Suspect]
     Active Substance: AFLIBERCEPT
     Indication: AGE-RELATED MACULAR DEGENERATION
     Dosage: 0.05 ML, ONCE (LEFT EYE)
     Route: 031
     Dates: start: 20150710, end: 20150710
  5. EYLEA [Suspect]
     Active Substance: AFLIBERCEPT
     Dosage: 0.05 ML, ONCE (LEFT EYE)
     Route: 031
     Dates: start: 20160401, end: 20160401

REACTIONS (1)
  - Loss of consciousness [Recovered/Resolved]

NARRATIVE: CASE EVENT DATE: 20160402
